FAERS Safety Report 6231189-X (Version None)
Quarter: 2009Q2

REPORT INFORMATION
  Report Type: 
  Country: None (occurrence: None)
  Receive Date: 20090616
  Receipt Date: 20090424
  Transmission Date: 20091009
  Serious: No
  Sender: FDA-Public Use
  Company Number: US-BAYER-200919236NA

PATIENT
  Age: 25 Year
  Sex: Female

DRUGS (2)
  1. YAZ [Suspect]
     Indication: CONTRACEPTION
     Route: 048
     Dates: start: 20090101
  2. IBUPROFEN [Concomitant]
     Dosage: ON REGULAR BASIS

REACTIONS (3)
  - NAUSEA [None]
  - NO ADVERSE EVENT [None]
  - VOMITING [None]
